FAERS Safety Report 4866684-9 (Version None)
Quarter: 2005Q4

REPORT INFORMATION
  Report Type: 
  Country: None (occurrence: None)
  Receive Date: 20051221
  Receipt Date: 20051212
  Transmission Date: 20060501
  Serious: Yes (Other)
  Sender: FDA-Public Use
  Company Number: 2005168531

PATIENT
  Age: 46 Year
  Sex: Female

DRUGS (1)
  1. XALATAN [Suspect]
     Indication: ILL-DEFINED DISORDER
     Dosage: 1 IN 1 D, OPHTHALMIC
     Route: 047

REACTIONS (2)
  - DERMATITIS ALLERGIC [None]
  - LARYNGEAL OEDEMA [None]
